FAERS Safety Report 13562455 (Version 1)
Quarter: 2017Q2

REPORT INFORMATION
  Report Type: Report from Study
  Country: None (occurrence: US)
  Receive Date: 20170519
  Receipt Date: 20170519
  Transmission Date: 20170830
  Serious: Yes (Hospitalization, Other)
  Sender: FDA-Public Use
  Company Number: US-ABBVIE-16K-163-1745585-00

PATIENT
  Sex: Female

DRUGS (2)
  1. HUMIRA [Suspect]
     Active Substance: ADALIMUMAB
     Indication: CROHN^S DISEASE
     Route: 058
  2. HUMIRA [Suspect]
     Active Substance: ADALIMUMAB
     Route: 058

REACTIONS (9)
  - Crohn^s disease [Unknown]
  - Dehydration [Unknown]
  - Back pain [Unknown]
  - Post procedural complication [Unknown]
  - Nerve injury [Unknown]
  - Neuralgia [Unknown]
  - Rotator cuff syndrome [Unknown]
  - Fall [Unknown]
  - Herpes zoster [Unknown]

NARRATIVE: CASE EVENT DATE: 2016
